FAERS Safety Report 19481076 (Version 2)
Quarter: 2021Q3

REPORT INFORMATION
  Report Type: Report from Study
  Country: None (occurrence: US)
  Receive Date: 20210630
  Receipt Date: 20210715
  Transmission Date: 20211014
  Serious: Yes (Hospitalization, Other)
  Sender: FDA-Public Use
  Company Number: US-ABBVIE-21K-163-3969187-00

PATIENT
  Age: 62 Year
  Sex: Female
  Weight: 112.59 kg

DRUGS (3)
  1. PFIZER?BIONTECH COVID?19 VACCINE [Concomitant]
     Active Substance: TOZINAMERAN
     Dosage: PFIZER
     Route: 030
     Dates: start: 20210405, end: 20210405
  2. SKYRIZI [Suspect]
     Active Substance: RISANKIZUMAB-RZAA
     Indication: PSORIASIS
     Route: 058
     Dates: start: 20201029
  3. PFIZER?BIONTECH COVID?19 VACCINE [Concomitant]
     Active Substance: TOZINAMERAN
     Indication: COVID-19 IMMUNISATION
     Dosage: PFIZER
     Route: 030
     Dates: start: 20210315, end: 20210315

REACTIONS (9)
  - Ankle fracture [Recovered/Resolved]
  - Tendon rupture [Recovered/Resolved]
  - Tibia fracture [Recovering/Resolving]
  - Fall [Recovering/Resolving]
  - Psoriasis [Recovering/Resolving]
  - Heart rate increased [Recovered/Resolved]
  - Myocardial infarction [Recovered/Resolved]
  - Pulmonary oedema [Recovered/Resolved]
  - Hypertension [Recovered/Resolved]

NARRATIVE: CASE EVENT DATE: 202103
